FAERS Safety Report 5235815-3 (Version None)
Quarter: 2007Q1

REPORT INFORMATION
  Report Type: 
  Country: None (occurrence: None)
  Receive Date: 20070212
  Receipt Date: 20070130
  Transmission Date: 20070707
  Serious: Yes (Other)
  Sender: FDA-Public Use
  Company Number: 2007AP00281

PATIENT
  Age: 29345 Day
  Sex: Female

DRUGS (14)
  1. SEROQUEL [Suspect]
     Indication: DEMENTIA ALZHEIMER'S TYPE
     Route: 048
     Dates: start: 20060913, end: 20061205
  2. SEROQUEL [Suspect]
     Route: 048
     Dates: start: 20061206, end: 20061213
  3. GASTER [Concomitant]
     Indication: GASTRIC ULCER
     Route: 048
     Dates: start: 20060927
  4. RISPERDAL [Concomitant]
     Indication: DEMENTIA ALZHEIMER'S TYPE
     Route: 048
     Dates: end: 20060920
  5. MAINTATE [Concomitant]
     Indication: HYPERTENSION
     Route: 048
     Dates: start: 20060927
  6. HERBESSER [Concomitant]
     Indication: HYPERTENSION
     Route: 048
     Dates: start: 20060927
  7. GLORIAMIN [Concomitant]
     Indication: GASTRIC ULCER
     Route: 048
     Dates: start: 20060927
  8. MAGNESIUM OXIDE [Concomitant]
     Indication: CONSTIPATION
     Route: 048
     Dates: start: 20060920
  9. VASOLAN [Concomitant]
     Indication: MYOCARDIAL ISCHAEMIA
     Route: 048
     Dates: end: 20060927
  10. MERISLON [Concomitant]
     Route: 048
     Dates: end: 20060927
  11. FAMOTIDINE [Concomitant]
     Indication: GASTRIC ULCER
     Route: 048
     Dates: end: 20060927
  12. PODONIN S [Concomitant]
     Indication: GASTRIC ULCER
     Route: 048
     Dates: end: 20060927
  13. SIPSERON [Concomitant]
     Indication: HYPERTENSION
     Route: 048
     Dates: end: 20060927
  14. PARKINES [Concomitant]
     Indication: DEMENTIA ALZHEIMER'S TYPE
     Route: 048
     Dates: end: 20060920

REACTIONS (1)
  - GRANULOCYTOPENIA [None]
